FAERS Safety Report 14971598 (Version 1)
Quarter: 2018Q2

REPORT INFORMATION
  Report Type: Spontaneous
  Country: US (occurrence: US)
  Receive Date: 20180604
  Receipt Date: 20180604
  Transmission Date: 20180711
  Serious: No
  Sender: FDA-Public Use
  Company Number: US-UNITED THERAPEUTICS-UNT-2018-007034

PATIENT
  Sex: Male

DRUGS (3)
  1. DIGOXIN. [Concomitant]
     Active Substance: DIGOXIN
     Indication: PRODUCT USED FOR UNKNOWN INDICATION
     Dosage: UNK
     Route: 065
  2. TYVASO [Suspect]
     Active Substance: TREPROSTINIL
     Indication: PULMONARY ARTERIAL HYPERTENSION
     Dosage: 54 ?G, QID
     Dates: start: 20180426
  3. TYVASO [Suspect]
     Active Substance: TREPROSTINIL
     Dosage: 72 ?G, QID

REACTIONS (6)
  - Headache [Unknown]
  - Off label use [Unknown]
  - Oxygen saturation decreased [Unknown]
  - Cough [Unknown]
  - Dyspnoea [Unknown]
  - Throat irritation [Unknown]

NARRATIVE: CASE EVENT DATE: 201804
